FAERS Safety Report 9776019 (Version 1)
Quarter: 2013Q4

REPORT INFORMATION
  Report Type: Spontaneous
  Country: US (occurrence: US)
  Receive Date: 20131220
  Receipt Date: 20131220
  Transmission Date: 20140711
  Serious: No
  Sender: FDA-Public Use
  Company Number: -SAAVPROD-THYR-1001007

PATIENT
  Sex: Male

DRUGS (1)
  1. THYROTROPIN ALFA [Suspect]
     Indication: PRODUCT USED FOR UNKNOWN INDICATION
     Dosage: 0.9 MG, QD
     Route: 030
     Dates: start: 20130805, end: 20130806

REACTIONS (2)
  - Blood thyroid stimulating hormone decreased [Not Recovered/Not Resolved]
  - Drug administered at inappropriate site [Unknown]
